FAERS Safety Report 4338218-9 (Version None)
Quarter: 2004Q2

REPORT INFORMATION
  Report Type: 
  Country: None (occurrence: None)
  Receive Date: 20040407
  Receipt Date: 20040326
  Transmission Date: 20050107
  Serious: Yes (Other)
  Sender: FDA-Public Use
  Company Number: JP-JNJFOC-20031202816

PATIENT
  Age: 56 Year
  Sex: Male

DRUGS (10)
  1. FENTANYL [Suspect]
     Indication: CANCER PAIN
     Dosage: 2.5 MG, 1 IN 3 DAY, TRANSDERMAL; 5 MG, 1 IN 3 DAY, TRANSDERMAL; 7.5 MG, 1 IN 3 DAY, TRANSDERMAL
     Route: 062
     Dates: start: 20020530, end: 20020806
  2. FENTANYL [Suspect]
     Indication: CANCER PAIN
     Dosage: 2.5 MG, 1 IN 3 DAY, TRANSDERMAL; 5 MG, 1 IN 3 DAY, TRANSDERMAL; 7.5 MG, 1 IN 3 DAY, TRANSDERMAL
     Route: 062
     Dates: start: 20020806, end: 20020815
  3. FENTANYL [Suspect]
     Indication: CANCER PAIN
     Dosage: 2.5 MG, 1 IN 3 DAY, TRANSDERMAL; 5 MG, 1 IN 3 DAY, TRANSDERMAL; 7.5 MG, 1 IN 3 DAY, TRANSDERMAL
     Route: 062
     Dates: start: 20020815
  4. TEGAFUR;GIMERACIL;OTERACIL POTASSIUM (ALL OTHER THERAPEUTIC PRODUCTS) [Concomitant]
  5. PROCHLORPERAZINE MALEATE (PROCHLORPERAZINE MALEATE) UNKNOWN [Concomitant]
  6. DICLOFENAC SODIUM [Concomitant]
  7. ANTIDIARRHEALS, INTESTINAL REGULATORS (ALL OTHER THERAPEUTIC PRODUCTS) [Concomitant]
  8. MAGNESIUM OXIDE (MAGNESIUM OXIDE) UNKNOWN [Concomitant]
  9. TAMSULOSIN HYDROCHLORIDE (TAMSULOSIN HYDROCHLORIDE) UNKNOWN [Concomitant]
  10. HALOPERIDOL [Concomitant]

REACTIONS (2)
  - CONVULSION [None]
  - HYPOAESTHESIA [None]
